FAERS Safety Report 14615029 (Version 3)
Quarter: 2018Q2

REPORT INFORMATION
  Report Type: Spontaneous
  Country: CZ (occurrence: CZ)
  Receive Date: 20180308
  Receipt Date: 20180418
  Transmission Date: 20180711
  Serious: Yes (Other)
  Sender: FDA-Public Use
  Company Number: PHHY2018CZ037967

PATIENT
  Sex: Female

DRUGS (1)
  1. AIRFLUSAN FORSPIRO [Suspect]
     Active Substance: FLUTICASONE PROPIONATE\SALMETEROL XINAFOATE
     Indication: PRODUCT USED FOR UNKNOWN INDICATION
     Dosage: UNK
     Route: 065

REACTIONS (3)
  - Hypersensitivity [Recovered/Resolved]
  - Swelling face [Recovered/Resolved]
  - Oral candidiasis [Recovered/Resolved]

NARRATIVE: CASE EVENT DATE: 20180205
